FAERS Safety Report 24704310 (Version 1)
Quarter: 2024Q4

REPORT INFORMATION
  Report Type: Spontaneous
  Country: US (occurrence: US)
  Receive Date: 20241206
  Receipt Date: 20241206
  Transmission Date: 20250115
  Serious: No
  Sender: STALLERGENES
  Company Number: US-STALCOR-2024-AER-02280

PATIENT
  Sex: Male

DRUGS (5)
  1. PALFORZIA [Suspect]
     Active Substance: PEANUT
     Indication: Food allergy
     Dosage: 2X20 MG AND 2X 100 MG: LVL 10: MIX CONTENTS OF CAPSULES WELL WITH SEMISOLID FOOD AS DIRECTED AND CON
     Route: 048
  2. ELDERBERRY [RUBUS IDAEUS LEAF;SAMBUCUS NIGRA FLOWER;SAMBUCUS NIGRA FRU [Concomitant]
     Indication: Product used for unknown indication
     Dosage: CHEWABLE
  3. FISH OIL [Concomitant]
     Active Substance: FISH OIL
     Indication: Product used for unknown indication
  4. IMMUNE SUPPORT [CALCIUM ASCORBATE;COLECALCIFEROL;PYRIDOXINE HYDROCHLOR [Concomitant]
     Indication: Product used for unknown indication
     Dosage: CHEWABLE
  5. BIFIDOBACTERIUM ANIMALIS LACTIS [Concomitant]
     Active Substance: BIFIDOBACTERIUM ANIMALIS LACTIS
     Indication: Product used for unknown indication

REACTIONS (1)
  - Illness [Not Recovered/Not Resolved]
